FAERS Safety Report 5796047-3 (Version None)
Quarter: 2008Q3

REPORT INFORMATION
  Report Type: 
  Country: None (occurrence: None)
  Receive Date: 20080701
  Receipt Date: 20080620
  Transmission Date: 20090109
  Serious: Yes (Hospitalization)
  Sender: FDA-Public Use
  Company Number: CH-JNJFOC-20080605071

PATIENT
  Age: 69 Year
  Sex: Male

DRUGS (7)
  1. RISPERIDONE [Suspect]
     Indication: PSYCHOTIC DISORDER
     Route: 048
  2. DONEPEZIL HCL [Concomitant]
     Indication: DEMENTIA ALZHEIMER'S TYPE
     Route: 048
  3. TRAZODONE HCL [Concomitant]
     Route: 065
  4. METFORMIN [Concomitant]
     Route: 048
  5. PIOGLITAZONE [Concomitant]
     Route: 048
  6. INSULIN [Concomitant]
     Route: 058
  7. LEVOPROMAZINE [Concomitant]
     Route: 048

REACTIONS (5)
  - BRONCHITIS [None]
  - EATING DISORDER [None]
  - EXTRAPYRAMIDAL DISORDER [None]
  - NEUROLEPTIC MALIGNANT SYNDROME [None]
  - PYREXIA [None]
